FAERS Safety Report 4442538-7 (Version None)
Quarter: 2004Q3

REPORT INFORMATION
  Report Type: 
  Country: None (occurrence: None)
  Receive Date: 20040903
  Receipt Date: 20040818
  Transmission Date: 20050211
  Serious: Yes (Other)
  Sender: FDA-Public Use
  Company Number: 2004UW14412

PATIENT
  Age: 63 Year
  Sex: Female
  Weight: 79.3795 kg

DRUGS (11)
  1. CRESTOR [Suspect]
     Indication: HYPERLIPIDAEMIA
     Dosage: 10 MG QD PO
     Route: 048
     Dates: start: 20040501, end: 20040706
  2. COSAMIN DS [Concomitant]
  3. FISH-EPA [Concomitant]
  4. FLAXSEED OIL [Concomitant]
  5. GARLIC [Concomitant]
  6. GLUCOSAMINE CHONDROITIN COMPLEX [Concomitant]
  7. MULTI-VITAMINS [Concomitant]
  8. OSCAL [Concomitant]
  9. VITAMIN B-12 [Concomitant]
  10. PROTONIX [Concomitant]
  11. RED RICE YEAST [Concomitant]

REACTIONS (9)
  - BACK PAIN [None]
  - CHILLS [None]
  - COUGH [None]
  - DIARRHOEA [None]
  - DYSGEUSIA [None]
  - FATIGUE [None]
  - HEADACHE [None]
  - HYPERHIDROSIS [None]
  - PYREXIA [None]
